FAERS Safety Report 6881474-3 (Version None)
Quarter: 2010Q3

REPORT INFORMATION
  Report Type: 
  Country: None (occurrence: None)
  Receive Date: 20100728
  Receipt Date: 20100726
  Transmission Date: 20110219
  Serious: Yes (Hospitalization)
  Sender: FDA-Public Use
  Company Number: JP-BRISTOL-MYERS SQUIBB COMPANY-15141328

PATIENT
  Age: 66 Year
  Weight: 51 kg

DRUGS (14)
  1. BRIPLATIN [Suspect]
     Indication: CERVIX CARCINOMA
     Dosage: CYCLE 4:60MG ON 13MAR2010 DROPPED OUT ON 08JUN2010
     Route: 042
     Dates: start: 20100218
  2. S-1 [Suspect]
     Indication: CERVIX CARCINOMA
     Dosage: CYCLE 4:120MG ON 13MAY10-26MAY10 DROPPED OUT ON 08JUN2010
     Route: 048
     Dates: start: 20100218, end: 20100526
  3. SELBEX [Concomitant]
     Indication: GASTRITIS
     Route: 048
     Dates: end: 20100612
  4. LORCAM [Concomitant]
     Indication: BACK PAIN
     Dosage: TABS
     Route: 048
     Dates: end: 20100612
  5. PURSENNID [Concomitant]
     Indication: CONSTIPATION
     Dosage: TABS
     Route: 048
     Dates: start: 20100212, end: 20100612
  6. JUZEN-TAIHO-TO [Concomitant]
     Indication: PROPHYLAXIS
     Route: 048
     Dates: start: 20100309, end: 20100612
  7. MAGNESIUM OXIDE [Concomitant]
     Indication: CONSTIPATION
     Route: 048
     Dates: start: 20100416, end: 20100628
  8. OXYCONTIN [Concomitant]
     Indication: BACK PAIN
     Route: 048
     Dates: start: 20100420, end: 20100612
  9. EURODIN [Concomitant]
     Indication: INSOMNIA
     Route: 048
     Dates: start: 20100511, end: 20100612
  10. FERROMIA [Concomitant]
     Indication: ANAEMIA
     Route: 048
     Dates: start: 20100425, end: 20100608
  11. VEEN-D [Concomitant]
     Indication: DECREASED APPETITE
     Route: 042
     Dates: start: 20100601, end: 20100608
  12. VITAMEDIN [Concomitant]
     Indication: DECREASED APPETITE
     Route: 042
     Dates: start: 20100601, end: 20100601
  13. ISOTONIC SODIUM CHLORIDE [Concomitant]
     Indication: DECREASED APPETITE
     Route: 042
     Dates: start: 20100601, end: 20100601
  14. LULICON [Concomitant]
     Indication: TINEA INFECTION
     Dates: start: 20100518

REACTIONS (1)
  - DEEP VEIN THROMBOSIS [None]
